FAERS Safety Report 5340929-3 (Version None)
Quarter: 2007Q2

REPORT INFORMATION
  Report Type: 
  Country: None (occurrence: None)
  Receive Date: 20070405
  Receipt Date: 20061102
  Transmission Date: 20071010
  Serious: No
  Sender: FDA-Public Use
  Company Number: US200605006283

PATIENT
  Sex: Female

DRUGS (2)
  1. PROZAC [Suspect]
  2. CYMBALTA [Suspect]
     Indication: ANXIETY
     Dosage: 60 MG
     Dates: start: 20060523

REACTIONS (9)
  - ADVERSE EVENT [None]
  - ANXIETY [None]
  - DIZZINESS [None]
  - DYSPNOEA [None]
  - FEELING ABNORMAL [None]
  - FEELING JITTERY [None]
  - HYPERHIDROSIS [None]
  - NERVOUSNESS [None]
  - SENSATION OF FOREIGN BODY [None]
